FAERS Safety Report 10599206 (Version 1)
Quarter: 2014Q4

REPORT INFORMATION
  Report Type: Report from Study
  Country: MX (occurrence: MX)
  Receive Date: 20141121
  Receipt Date: 20141121
  Transmission Date: 20150529
  Serious: Yes (Hospitalization, Disabling)
  Sender: FDA-Public Use
  Company Number: PHHY2014MX152689

PATIENT
  Age: 69 Year
  Sex: Male

DRUGS (6)
  1. EXFORGE HCT [Suspect]
     Active Substance: AMLODIPINE BESYLATE\HYDROCHLOROTHIAZIDE\VALSARTAN
     Indication: HYPERTENSION
     Dosage: 1 DF, QD
     Route: 048
     Dates: start: 2009
  2. OMEPRAZOLE. [Concomitant]
     Active Substance: OMEPRAZOLE
     Indication: ABDOMINAL DISCOMFORT
     Dosage: 1 DF, QD
     Route: 065
     Dates: start: 201404
  3. DULOXETINE [Concomitant]
     Active Substance: DULOXETINE
     Indication: NERVOUS SYSTEM DISORDER
     Dosage: 1 DF, QD
     Route: 065
     Dates: start: 201404
  4. RISPERIDONE. [Concomitant]
     Active Substance: RISPERIDONE
     Indication: PRODUCT USED FOR UNKNOWN INDICATION
     Dosage: 0.5 DF, QD (AT NIGHT)
     Route: 065
     Dates: start: 201404
  5. EXFORGE HCT [Suspect]
     Active Substance: AMLODIPINE BESYLATE\HYDROCHLOROTHIAZIDE\VALSARTAN
     Dosage: 1 DF, QD
     Route: 048
  6. ATORVASTATIN [Concomitant]
     Active Substance: ATORVASTATIN
     Indication: PRODUCT USED FOR UNKNOWN INDICATION
     Dosage: 1 DF (FORMULATION UNKNOWN), QD
     Route: 065
     Dates: start: 201404

REACTIONS (5)
  - Embolism [Recovered/Resolved with Sequelae]
  - Hemiplegia [Not Recovered/Not Resolved]
  - Blood pressure increased [Unknown]
  - Memory impairment [Not Recovered/Not Resolved]
  - Fall [Recovered/Resolved with Sequelae]

NARRATIVE: CASE EVENT DATE: 20140303
